FAERS Safety Report 12101463 (Version 1)
Quarter: 2016Q1

REPORT INFORMATION
  Report Type: Spontaneous
  Country: FR (occurrence: FR)
  Receive Date: 20160222
  Receipt Date: 20160222
  Transmission Date: 20160526
  Serious: Yes (Hospitalization)
  Sender: FDA-Public Use
  Company Number: FR-SA-2016SA029056

PATIENT
  Age: 67 Year
  Sex: Male
  Weight: 69 kg

DRUGS (7)
  1. EUCREAS [Suspect]
     Active Substance: METFORMIN HYDROCHLORIDE\VILDAGLIPTIN
     Indication: TYPE 1 DIABETES MELLITUS
     Dosage: MORNING END EVENING
     Route: 048
     Dates: end: 20160124
  2. ENALAPRIL MALEATE. [Suspect]
     Active Substance: ENALAPRIL MALEATE
     Indication: HYPERTENSION
     Route: 048
     Dates: end: 20160124
  3. TRIMEBUTINE [Concomitant]
     Active Substance: TRIMEBUTINE
     Route: 065
  4. AMAREL [Suspect]
     Active Substance: GLIMEPIRIDE
     Indication: TYPE 1 DIABETES MELLITUS
     Dosage: MORNING
     Route: 048
     Dates: end: 20160124
  5. ALPRAZOLAM. [Suspect]
     Active Substance: ALPRAZOLAM
     Dosage: MORNING AND EVENING
     Route: 048
     Dates: end: 20160124
  6. ESCITALOPRAM [Suspect]
     Active Substance: ESCITALOPRAM OXALATE
     Indication: DEPRESSION
     Route: 048
     Dates: end: 20160124
  7. ZOLPIDEM [Suspect]
     Active Substance: ZOLPIDEM\ZOLPIDEM TARTRATE
     Dosage: IF NECESSARY ON EVENING
     Route: 048
     Dates: end: 20160124

REACTIONS (1)
  - Acute kidney injury [Recovered/Resolved]

NARRATIVE: CASE EVENT DATE: 20160123
